FAERS Safety Report 8806921 (Version 1)
Quarter: 2012Q4

REPORT INFORMATION
  Report Type: Spontaneous
  Country: US (occurrence: None)
  Receive Date: 20120919
  Receipt Date: 20120919
  Transmission Date: 20130627
  Serious: Yes (Hospitalization, Other)
  Sender: FDA-Public Use
  Company Number: 2012MA010983

PATIENT
  Age: 13 Year
  Sex: Female

DRUGS (1)
  1. FEVERALL [Suspect]
     Indication: INTENTIONAL OVERDOSE

REACTIONS (4)
  - Hepatic failure [None]
  - Encephalopathy [None]
  - Intracranial pressure increased [None]
  - Intentional overdose [None]
